FAERS Safety Report 5171108-0 (Version None)
Quarter: 2006Q4

REPORT INFORMATION
  Report Type: 
  Country: None (occurrence: None)
  Receive Date: 20061213
  Receipt Date: 20061205
  Transmission Date: 20070319
  Serious: Yes (Other)
  Sender: FDA-Public Use
  Company Number: BW-GLAXOSMITHKLINE-B0450266A

PATIENT
  Age: 41 Year
  Sex: Female

DRUGS (3)
  1. EPIVIR [Suspect]
     Indication: ACQUIRED IMMUNODEFICIENCY SYNDROME
     Dosage: 300MG PER DAY
     Route: 048
     Dates: start: 20031115
  2. SUSTIVA [Concomitant]
     Indication: ACQUIRED IMMUNODEFICIENCY SYNDROME
     Dosage: 600MG PER DAY
     Route: 048
     Dates: start: 20031115
  3. ZERIT [Concomitant]
     Indication: ACQUIRED IMMUNODEFICIENCY SYNDROME
     Dosage: 80MG PER DAY
     Dates: start: 20031115

REACTIONS (3)
  - ABORTION SPONTANEOUS [None]
  - DRUG EXPOSURE DURING PREGNANCY [None]
  - PREGNANCY [None]
